FAERS Safety Report 8004900-5 (Version None)
Quarter: 2011Q4

REPORT INFORMATION
  Report Type: 
  Country: None (occurrence: None)
  Receive Date: 20111219
  Receipt Date: 20111212
  Transmission Date: 20120403
  Serious: Yes (Other)
  Sender: FDA-Public Use
  Company Number: 2011SP048918

PATIENT
  Sex: Female

DRUGS (8)
  1. MICARDIS [Concomitant]
  2. INTRON A [Suspect]
     Indication: MALIGNANT MELANOMA
     Dosage: 40 MIU;IV  30 MIU;IV  22.6 MIU;TIW;IV
     Route: 042
     Dates: start: 20111016
  3. INTRON A [Suspect]
     Indication: MALIGNANT MELANOMA
     Dosage: 40 MIU;IV  30 MIU;IV  22.6 MIU;TIW;IV
     Route: 042
     Dates: start: 20110829
  4. INTRON A [Suspect]
     Indication: MALIGNANT MELANOMA
     Dosage: 40 MIU;IV  30 MIU;IV  22.6 MIU;TIW;IV
     Route: 042
     Dates: start: 20111006
  5. INTRON A [Suspect]
     Indication: MALIGNANT MELANOMA
     Dosage: 40 MIU;IV  30 MIU;IV  22.6 MIU;TIW;IV
     Route: 042
     Dates: start: 20111003
  6. ZOFRAN [Concomitant]
  7. ANTACID [Concomitant]
  8. ACETAMINOPHEN [Concomitant]

REACTIONS (9)
  - NAUSEA [None]
  - LIVER FUNCTION TEST ABNORMAL [None]
  - HEADACHE [None]
  - LETHARGY [None]
  - RASH [None]
  - FATIGUE [None]
  - CHILLS [None]
  - DYSPNOEA [None]
  - CARDIAC FLUTTER [None]
